FAERS Safety Report 4384470-3 (Version None)
Quarter: 2004Q2

REPORT INFORMATION
  Report Type: 
  Country: None (occurrence: None)
  Receive Date: 20040624
  Receipt Date: 20040614
  Transmission Date: 20050107
  Serious: Yes (Hospitalization)
  Sender: FDA-Public Use
  Company Number: US-MERCK-0406USA01454

PATIENT
  Age: 74 Year
  Sex: Female

DRUGS (5)
  1. ALLEGRA [Concomitant]
     Route: 065
  2. FORADIL [Concomitant]
     Route: 065
  3. SYNTHROID [Concomitant]
     Route: 065
  4. SINGULAIR [Suspect]
     Indication: HYPERSENSITIVITY
     Route: 048
     Dates: start: 20030301, end: 20030618
  5. SINGULAIR [Suspect]
     Indication: ASTHMA
     Route: 048
     Dates: start: 20030301, end: 20030618

REACTIONS (3)
  - DIZZINESS [None]
  - HYPERTENSION [None]
  - SYNCOPE [None]
